FAERS Safety Report 12782963 (Version 1)
Quarter: 2016Q3

REPORT INFORMATION
  Report Type: Spontaneous
  Country: US (occurrence: US)
  Receive Date: 20160927
  Receipt Date: 20160927
  Transmission Date: 20161109
  Serious: No
  Sender: FDA-Public Use
  Company Number: US-PFIZER INC-2016446643

PATIENT
  Sex: Female
  Weight: 88 kg

DRUGS (1)
  1. IBRANCE [Suspect]
     Active Substance: PALBOCICLIB
     Indication: BREAST CANCER STAGE IV
     Dosage: 125 UG, ONCE DAILY, FOR 3 WEEKS
     Route: 048
     Dates: start: 20160913

REACTIONS (4)
  - Vomiting [Unknown]
  - Feeling abnormal [Unknown]
  - Cough [Unknown]
  - Fatigue [Unknown]

NARRATIVE: CASE EVENT DATE: 2016
